FAERS Safety Report 7741131 (Version 77)
Quarter: 2023Q4

REPORT INFORMATION
  Report Type: Report from Study
  Country: CA (occurrence: CA)
  Receive Date: 20101228
  Receipt Date: 20231211
  Transmission Date: 20240110
  Serious: Yes (Hospitalization, Other)
  Sender: FDA-Public Use
  Company Number: PHHY2010CA86149

PATIENT
  Age: 58 Year
  Sex: Male

DRUGS (23)
  1. SANDOSTATIN [Suspect]
     Active Substance: OCTREOTIDE ACETATE
     Indication: Neuroendocrine tumour
     Dosage: 150 UG, BID (FOR 3 WEEKS)
     Route: 058
     Dates: start: 20101016, end: 20101214
  2. SANDOSTATIN [Suspect]
     Active Substance: OCTREOTIDE ACETATE
     Indication: Pancreatic fistula
     Dosage: 150 UG, BID
     Route: 058
     Dates: start: 20101215
  3. SANDOSTATIN [Suspect]
     Active Substance: OCTREOTIDE ACETATE
  4. SANDOSTATIN LAR DEPOT [Suspect]
     Active Substance: OCTREOTIDE ACETATE
     Indication: Neuroendocrine tumour
     Dosage: 40 MG, Q3W
     Route: 030
     Dates: start: 20101215
  5. SANDOSTATIN LAR DEPOT [Suspect]
     Active Substance: OCTREOTIDE ACETATE
     Indication: Pancreatic fistula
     Dosage: 40 MG, Q3W
     Route: 030
     Dates: start: 20101215
  6. SANDOSTATIN LAR DEPOT [Suspect]
     Active Substance: OCTREOTIDE ACETATE
     Dosage: 30 MG, QMO (ONCE A MONTH)
     Route: 030
     Dates: start: 20110309
  7. SANDOSTATIN LAR DEPOT [Suspect]
     Active Substance: OCTREOTIDE ACETATE
     Dosage: 40 MG, QMO (ONCE A MONTH)
     Route: 030
     Dates: start: 20160202, end: 20170621
  8. SANDOSTATIN LAR DEPOT [Suspect]
     Active Substance: OCTREOTIDE ACETATE
     Dosage: 40 MG, QW3 (EVERY THREE WEEKS)
     Route: 030
     Dates: start: 20170719
  9. SANDOSTATIN LAR DEPOT [Suspect]
     Active Substance: OCTREOTIDE ACETATE
     Dosage: 40 MG, Q3W (EVERY THREE WEEKS)
     Route: 030
  10. SANDOSTATIN LAR DEPOT [Suspect]
     Active Substance: OCTREOTIDE ACETATE
     Dosage: UNK
     Route: 030
     Dates: start: 20191126
  11. OCTREOTIDE [Suspect]
     Active Substance: OCTREOTIDE
     Indication: Product used for unknown indication
     Dosage: 150 UG, BID FOR 3 WEEKS
     Route: 058
  12. INSULIN NOS [Concomitant]
     Active Substance: INSULIN NOS
     Indication: Product used for unknown indication
     Dosage: UNK
     Route: 065
  13. CELEXA [Concomitant]
     Active Substance: CITALOPRAM HYDROBROMIDE
     Indication: Product used for unknown indication
     Dosage: UNK
     Route: 065
  14. LIPITOR [Concomitant]
     Active Substance: ATORVASTATIN CALCIUM
     Indication: Product used for unknown indication
     Dosage: UNK
     Route: 065
  15. ATIVAN [Concomitant]
     Active Substance: LORAZEPAM
     Indication: Product used for unknown indication
     Dosage: UNK
     Route: 065
  16. EZETIMIBE [Concomitant]
     Active Substance: EZETIMIBE
     Indication: Product used for unknown indication
     Dosage: UNK
     Route: 065
  17. NORVASC [Concomitant]
     Active Substance: AMLODIPINE BESYLATE
     Indication: Product used for unknown indication
     Dosage: UNK
     Route: 065
  18. EDOXABAN TOSYLATE [Concomitant]
     Active Substance: EDOXABAN TOSYLATE
     Indication: Product used for unknown indication
     Dosage: 60 MG
     Route: 065
  19. DILAUDID [Concomitant]
     Active Substance: HYDROMORPHONE HYDROCHLORIDE
     Indication: Product used for unknown indication
     Dosage: UNK
     Route: 065
  20. PANTOPRAZOLE SODIUM [Concomitant]
     Active Substance: PANTOPRAZOLE SODIUM
     Indication: Product used for unknown indication
     Dosage: UNK
     Route: 065
  21. XGEVA [Concomitant]
     Active Substance: DENOSUMAB
     Indication: Product used for unknown indication
     Dosage: UNK
     Route: 058
  22. DIAMICRON [Concomitant]
     Indication: Product used for unknown indication
     Dosage: UNK
     Route: 065
  23. FRAGMIN [Concomitant]
     Active Substance: DALTEPARIN SODIUM
     Indication: Product used for unknown indication
     Dosage: UNK
     Route: 065

REACTIONS (39)
  - Incisional hernia [Recovered/Resolved]
  - Postoperative wound infection [Unknown]
  - Abdominal infection [Recovering/Resolving]
  - Staphylococcal infection [Unknown]
  - Hypercalcaemia [Unknown]
  - Heart rate increased [Unknown]
  - Skin cancer [Unknown]
  - Second primary malignancy [Unknown]
  - Blood pressure increased [Unknown]
  - Metastasis [Unknown]
  - Malignant neoplasm progression [Unknown]
  - Metastases to liver [Unknown]
  - Back pain [Unknown]
  - Hypotension [Unknown]
  - Erythema [Unknown]
  - Pain [Unknown]
  - Thrombophlebitis [Unknown]
  - Gait disturbance [Unknown]
  - Arthralgia [Unknown]
  - Blood pressure decreased [Unknown]
  - Injection site haemorrhage [Unknown]
  - General physical health deterioration [Unknown]
  - Pallor [Unknown]
  - Tremor [Unknown]
  - Nausea [Unknown]
  - Abdominal pain upper [Unknown]
  - Hypoglycaemia [Recovering/Resolving]
  - Dizziness [Unknown]
  - Asthenia [Unknown]
  - Injection site inflammation [Recovered/Resolved]
  - Alopecia [Unknown]
  - Fall [Unknown]
  - Injection site pain [Recovered/Resolved]
  - Needle issue [Unknown]
  - Product use in unapproved indication [Unknown]
  - Inappropriate schedule of product administration [Unknown]
  - Incorrect dose administered [Unknown]
  - Product deposit [Unknown]
  - Underdose [Unknown]

NARRATIVE: CASE EVENT DATE: 20140215
